FAERS Safety Report 5827063-0 (Version None)
Quarter: 2008Q3

REPORT INFORMATION
  Report Type: 
  Country: None (occurrence: None)
  Receive Date: 20080729
  Receipt Date: 20080729
  Transmission Date: 20090109
  Serious: Yes (Other)
  Sender: FDA-Public Use
  Company Number: None

PATIENT
  Age: 31 Year
  Sex: Male
  Weight: 95.2554 kg

DRUGS (1)
  1. PAXIL [Suspect]
     Indication: BIPOLAR I DISORDER
     Dosage: 20MGS ONCE A DAY PO
     Route: 048
     Dates: start: 20070801, end: 20080725

REACTIONS (10)
  - CRYING [None]
  - DRUG WITHDRAWAL SYNDROME [None]
  - FEAR [None]
  - HOT FLUSH [None]
  - HYPERSOMNIA [None]
  - IMPAIRED WORK ABILITY [None]
  - IRRITABILITY [None]
  - MANIA [None]
  - NIGHT SWEATS [None]
  - NIGHTMARE [None]
